FAERS Safety Report 17479137 (Version 3)
Quarter: 2020Q2

REPORT INFORMATION
  Report Type: Report from Study
  Country: BR (occurrence: BR)
  Receive Date: 20200228
  Receipt Date: 20200416
  Transmission Date: 20200713
  Serious: Yes (Hospitalization)
  Sender: FDA-Public Use
  Company Number: BR-JNJFOC-20191219655

PATIENT
  Age: 55 Year
  Sex: Female

DRUGS (2)
  1. PURAN [Concomitant]
     Active Substance: LEVOTHYROXINE SODIUM
  2. SIMPONI [Suspect]
     Active Substance: GOLIMUMAB
     Indication: RHEUMATOID ARTHRITIS
     Dosage: USES FOR 8 MONTHS (AS REPORTED)
     Route: 058

REACTIONS (2)
  - Pneumonia [Not Recovered/Not Resolved]
  - Influenza [Recovered/Resolved]

NARRATIVE: CASE EVENT DATE: 20191210
